FAERS Safety Report 9826934 (Version 1)
Quarter: 2014Q1

REPORT INFORMATION
  Report Type: Spontaneous
  Country: US (occurrence: US)
  Receive Date: 20140117
  Receipt Date: 20140117
  Transmission Date: 20141002
  Serious: No
  Sender: FDA-Public Use
  Company Number: US-GLAXOSMITHKLINE-A1019449A

PATIENT
  Age: 55 Year
  Sex: Female

DRUGS (2)
  1. PROMACTA [Suspect]
     Indication: IMMUNE THROMBOCYTOPENIC PURPURA
     Dosage: 50MG PER DAY
     Route: 048
     Dates: start: 20130222
  2. LISINOPRIL [Concomitant]

REACTIONS (7)
  - Alopecia [Not Recovered/Not Resolved]
  - Decreased appetite [Unknown]
  - Abnormal loss of weight [Unknown]
  - Pruritus [Unknown]
  - Pruritus [Unknown]
  - Rash [Unknown]
  - Arthralgia [Unknown]
